FAERS Safety Report 9431565 (Version 4)
Quarter: 2013Q4

REPORT INFORMATION
  Report Type: Report from Study
  Country: IE (occurrence: IE)
  Receive Date: 20130731
  Receipt Date: 20131118
  Transmission Date: 20140711
  Serious: Yes (Other)
  Sender: FDA-Public Use
  Company Number: IE-ROCHE-1194955

PATIENT
  Age: 79 Year
  Sex: Female

DRUGS (11)
  1. TRASTUZUMAB EMTANSINE [Suspect]
     Indication: BREAST CANCER METASTATIC
     Route: 042
     Dates: start: 20130313, end: 20130626
  2. TRASTUZUMAB EMTANSINE [Suspect]
     Dosage: CYCLE 2
     Route: 042
     Dates: start: 20130403
  3. TRASTUZUMAB EMTANSINE [Suspect]
     Dosage: CYCLE 3
     Route: 042
     Dates: start: 20130424
  4. TRASTUZUMAB EMTANSINE [Suspect]
     Dosage: CYCLE 4
     Route: 042
     Dates: start: 20130515
  5. TRASTUZUMAB EMTANSINE [Suspect]
     Dosage: CYCLE 5
     Route: 042
     Dates: start: 20130605
  6. TRASTUZUMAB EMTANSINE [Suspect]
     Dosage: CYCLE 6
     Route: 042
     Dates: start: 20130626, end: 20130626
  7. XELODA [Suspect]
     Indication: BREAST CANCER METASTATIC
     Route: 065
  8. LAPATINIB [Suspect]
     Indication: BREAST CANCER METASTATIC
     Route: 065
  9. MEGACE [Concomitant]
     Indication: INCREASED APPETITE
     Route: 048
     Dates: start: 201306
  10. ZOLEDRONIC ACID [Concomitant]
     Indication: METASTASES TO BONE
     Route: 042
     Dates: start: 201106
  11. LYRICA [Concomitant]
     Indication: NEUROPATHY PERIPHERAL
     Route: 048
     Dates: start: 201306

REACTIONS (2)
  - Neuropathy peripheral [Not Recovered/Not Resolved]
  - Diarrhoea [Recovered/Resolved]
